FAERS Safety Report 5814761-8 (Version None)
Quarter: 2008Q3

REPORT INFORMATION
  Report Type: 
  Country: None (occurrence: None)
  Receive Date: 20080715
  Receipt Date: 20080703
  Transmission Date: 20090109
  Serious: Yes (Hospitalization)
  Sender: FDA-Public Use
  Company Number: 2008-180121-NL

PATIENT
  Sex: Female

DRUGS (3)
  1. MIRTAZAPINE [Suspect]
     Dosage: DF
  2. INDAPAMIDE [Suspect]
     Dosage: DF
  3. RAMIPRIL [Suspect]
     Dosage: DF

REACTIONS (5)
  - ABDOMINAL PAIN [None]
  - HYPONATRAEMIA [None]
  - MALAISE [None]
  - NERVOUSNESS [None]
  - SPEECH DISORDER [None]
